FAERS Safety Report 5819207-1 (Version None)
Quarter: 2008Q3

REPORT INFORMATION
  Report Type: 
  Country: None (occurrence: None)
  Receive Date: 20080723
  Receipt Date: 20080710
  Transmission Date: 20090109
  Serious: Yes (Other)
  Sender: FDA-Public Use
  Company Number: US-BAYER-200812808BCC

PATIENT
  Age: 45 Year
  Sex: Male
  Weight: 82 kg

DRUGS (1)
  1. ASPIRIN [Suspect]
     Indication: ANALGESIA
     Dosage: AS USED: 325 MG  UNIT DOSE: 325 MG
     Dates: start: 19780101

REACTIONS (1)
  - THROAT TIGHTNESS [None]
